FAERS Safety Report 9969297 (Version 1)
Quarter: 2014Q1

REPORT INFORMATION
  Report Type: Spontaneous
  Country: US (occurrence: US)
  Receive Date: 20140306
  Receipt Date: 20140306
  Transmission Date: 20141002
  Serious: No
  Sender: FDA-Public Use
  Company Number: US-BIOGENIDEC-2014BI018305

PATIENT
  Sex: Female

DRUGS (11)
  1. TECFIDERA [Suspect]
     Indication: MULTIPLE SCLEROSIS
     Route: 048
     Dates: start: 201402
  2. AMPYRA [Concomitant]
  3. VALIUM [Concomitant]
  4. BACLOFEN [Concomitant]
  5. CRESTOR [Concomitant]
  6. TYLENOL [Concomitant]
  7. MECLIZINE [Concomitant]
  8. OXYBUTYNIN [Concomitant]
  9. VITAMIN D [Concomitant]
  10. FISH OIL [Concomitant]
  11. ASA [Concomitant]

REACTIONS (2)
  - Peroneal nerve palsy [Unknown]
  - Gait disturbance [Unknown]
